FAERS Safety Report 8709560 (Version 3)
Quarter: 2012Q4

REPORT INFORMATION
  Report Type: 
  Country: JP (occurrence: JP)
  Receive Date: 20120806
  Receipt Date: 20120926
  Transmission Date: 20130627
  Serious: Yes (Hospitalization, Other)
  Sender: FDA-Public Use
  Company Number: JP-ROCHE-1083558

PATIENT
  Age: 59 Year
  Sex: Male
  Weight: 69 kg

DRUGS (3)
  1. AVASTIN [Suspect]
     Indication: COLON CANCER
     Dosage: Dosage is uncertain.
     Route: 041
     Dates: start: 20110506, end: 20110707
  2. TS-1 [Suspect]
     Indication: COLON CANCER RECURRENT
     Route: 048
     Dates: start: 20110506, end: 20110721
  3. ELPLAT [Suspect]
     Indication: COLON CANCER RECURRENT
     Route: 041
     Dates: start: 20110506, end: 20110707

REACTIONS (5)
  - Fistula [Recovered/Resolved]
  - Neuropathy peripheral [Not Recovered/Not Resolved]
  - Stomatitis [Recovered/Resolved]
  - Nausea [Recovered/Resolved]
  - Metabolic acidosis [Unknown]
